FAERS Safety Report 7343311-2 (Version None)
Quarter: 2011Q1

REPORT INFORMATION
  Report Type: 
  Country: None (occurrence: None)
  Receive Date: 20110310
  Receipt Date: 20110228
  Transmission Date: 20110831
  Serious: Yes (Other)
  Sender: FDA-Public Use
  Company Number: JP-PFIZER INC-2011025165

PATIENT
  Age: 65 Year
  Sex: Male
  Weight: 87 kg

DRUGS (7)
  1. BEVACIZUMAB [Suspect]
     Indication: COLON CANCER
  2. ERBITUX [Concomitant]
     Dosage: 495 MG, UNK
     Route: 041
     Dates: start: 20090220, end: 20100630
  3. ERBITUX [Concomitant]
     Indication: COLON CANCER
     Dosage: 792 MG, UNK
     Route: 041
     Dates: start: 20090209, end: 20090209
  4. MEROPENEM TRIHYDRATE [Concomitant]
     Indication: INFECTION PROPHYLAXIS
     Dosage: 0.5 G, 2X/DAY
     Route: 041
     Dates: start: 20090614, end: 20090617
  5. CAMPTOSAR [Suspect]
     Indication: COLON CANCER
     Dosage: 297 MG, CYCLIC
     Route: 041
     Dates: start: 20090220, end: 20100616
  6. CALCIUM FOLINATE [Suspect]
     Indication: COLON CANCER
  7. FLUOROURACIL [Suspect]
     Indication: COLON CANCER

REACTIONS (4)
  - CONJUNCTIVITIS [None]
  - DERMATITIS ACNEIFORM [None]
  - PARONYCHIA [None]
  - NEUTROPENIA [None]
